FAERS Safety Report 7118550-6 (Version None)
Quarter: 2010Q4

REPORT INFORMATION
  Report Type: 
  Country: None (occurrence: None)
  Receive Date: 20101123
  Receipt Date: 20101119
  Transmission Date: 20110411
  Serious: Yes (Life-Threatening, Hospitalization)
  Sender: FDA-Public Use
  Company Number: JP-NOVOPROD-318697

PATIENT
  Age: 51 Year
  Sex: Male
  Weight: 132 kg

DRUGS (9)
  1. VICTOZA [Suspect]
     Indication: TYPE 2 DIABETES MELLITUS
     Dosage: UNK
     Route: 058
     Dates: start: 20100701, end: 20101104
  2. CONIEL [Concomitant]
     Dosage: UNK
     Route: 048
  3. BLOPRESS [Concomitant]
     Dosage: UNK
     Route: 048
  4. TANATRIL [Concomitant]
     Dosage: UNK
     Route: 048
  5. CRESTOR [Concomitant]
     Dosage: UNK
     Route: 048
  6. AMARYL [Concomitant]
     Dosage: UNK
     Route: 048
  7. ACTOS [Concomitant]
     Dosage: UNK
     Route: 048
  8. METGLUCO [Concomitant]
     Dosage: UNK
     Route: 048
  9. SEIBULE [Concomitant]
     Dosage: UNK
     Route: 048

REACTIONS (5)
  - ABDOMINAL DISTENSION [None]
  - DIABETES MELLITUS INADEQUATE CONTROL [None]
  - DIARRHOEA [None]
  - PANCREATIC CARCINOMA [None]
  - WEIGHT DECREASED [None]
